FAERS Safety Report 11591316 (Version 2)
Quarter: 2016Q1

REPORT INFORMATION
  Report Type: Report from Study
  Country: US (occurrence: US)
  Receive Date: 20151004
  Receipt Date: 20160215
  Transmission Date: 20160525
  Serious: Yes (Hospitalization, Other)
  Sender: FDA-Public Use
  Company Number: US-AMGEN-USASP2015101761

PATIENT
  Age: 53 Year
  Sex: Female
  Weight: 66.67 kg

DRUGS (3)
  1. ENBREL [Suspect]
     Active Substance: ETANERCEPT
     Dosage: 50 MG, QWK
     Route: 058
     Dates: start: 20150924
  2. ENBREL [Suspect]
     Active Substance: ETANERCEPT
     Dosage: 50 MG, QWK
     Route: 058
     Dates: start: 201511
  3. ENBREL [Suspect]
     Active Substance: ETANERCEPT
     Indication: RHEUMATOID ARTHRITIS
     Dosage: 50 MG, QWK
     Route: 058
     Dates: start: 2006, end: 2009

REACTIONS (7)
  - Abdominal distension [Unknown]
  - Weight decreased [Unknown]
  - Malaise [Unknown]
  - Ulcer [Unknown]
  - Obstruction gastric [Unknown]
  - General physical health deterioration [Unknown]
  - Malabsorption [Unknown]

NARRATIVE: CASE EVENT DATE: 2009
